FAERS Safety Report 5431584-2 (Version None)
Quarter: 2007Q3

REPORT INFORMATION
  Report Type: 
  Country: None (occurrence: None)
  Receive Date: 20070830
  Receipt Date: 20070823
  Transmission Date: 20080115
  Serious: Yes (Hospitalization)
  Sender: FDA-Public Use
  Company Number: SE-BAXTER-2007BH006716

PATIENT
  Age: 81 Year
  Sex: Female

DRUGS (1)
  1. IMMUNE GLOBULIN INTRAVENOUS (HUMAN) [Suspect]
     Indication: RHEUMATOID ARTHRITIS
     Dosage: DOSE UNIT:
     Route: 042
     Dates: start: 20070314, end: 20070314

REACTIONS (1)
  - TRANSIENT ISCHAEMIC ATTACK [None]
